FAERS Safety Report 20904478 (Version 4)
Quarter: 2022Q2

REPORT INFORMATION
  Report Type: Report from Study
  Country: US (occurrence: US)
  Receive Date: 20220602
  Receipt Date: 20220621
  Transmission Date: 20220721
  Serious: No
  Sender: FDA-Public Use
  Company Number: US-BIOVITRUM-2022US07111

PATIENT
  Sex: Female

DRUGS (1)
  1. KINERET [Suspect]
     Active Substance: ANAKINRA
     Indication: Rheumatoid arthritis
     Route: 058
     Dates: start: 20220520

REACTIONS (21)
  - Fatigue [Not Recovered/Not Resolved]
  - Influenza [Unknown]
  - Rhinorrhoea [Unknown]
  - Chills [Unknown]
  - Ear discomfort [Unknown]
  - Sinus congestion [Unknown]
  - Oedema peripheral [Unknown]
  - Chest discomfort [Unknown]
  - Fluid retention [Unknown]
  - Malaise [Unknown]
  - Immune system disorder [Unknown]
  - Erythema [Unknown]
  - Bedridden [Unknown]
  - Injection site discomfort [Unknown]
  - Injection site pain [Unknown]
  - Injection site reaction [Unknown]
  - Injection site warmth [Unknown]
  - Rash [Unknown]
  - Injection site inflammation [Unknown]
  - Injection site erythema [Unknown]
  - Product dose omission issue [Unknown]
